FAERS Safety Report 25169034 (Version 1)
Quarter: 2025Q2

REPORT INFORMATION
  Report Type: Spontaneous
  Country: US (occurrence: US)
  Receive Date: 20250407
  Receipt Date: 20250407
  Transmission Date: 20250716
  Serious: Yes (Other)
  Sender: PFIZER
  Company Number: US-PFIZER INC-202500071328

PATIENT
  Age: 69 Year
  Sex: Female

DRUGS (1)
  1. NURTEC ODT [Suspect]
     Active Substance: RIMEGEPANT SULFATE

REACTIONS (4)
  - Rheumatoid arthritis [Unknown]
  - Muscle spasms [Unknown]
  - Dyspnoea [Unknown]
  - Headache [Unknown]
